FAERS Safety Report 15969026 (Version 1)
Quarter: 2019Q1

REPORT INFORMATION
  Report Type: Spontaneous
  Country: ES (occurrence: ES)
  Receive Date: 20190215
  Receipt Date: 20190215
  Transmission Date: 20190418
  Serious: Yes (Death, Hospitalization, Other)
  Sender: FDA-Public Use
  Company Number: ES-ASTRAZENECA-2019SE26119

PATIENT
  Age: 9 Month
  Sex: Female

DRUGS (2)
  1. SYNAGIS [Suspect]
     Active Substance: PALIVIZUMAB
     Indication: PREMATURE BABY
     Dosage: MONTHLY
     Route: 030
     Dates: start: 20181008, end: 20181107
  2. SYNAGIS [Suspect]
     Active Substance: PALIVIZUMAB
     Indication: ANTIVIRAL PROPHYLAXIS
     Dosage: MONTHLY
     Route: 030
     Dates: start: 20181008, end: 20181107

REACTIONS (13)
  - Hypoxia [Not Recovered/Not Resolved]
  - Right ventricular dysfunction [Unknown]
  - Multiple organ dysfunction syndrome [Fatal]
  - Hepatic failure [Fatal]
  - Bradycardia [Unknown]
  - Infection [Unknown]
  - Respiratory distress [Unknown]
  - Renal failure [Fatal]
  - Oxygen saturation decreased [Unknown]
  - General physical health deterioration [Unknown]
  - Pulmonary hypertension [Not Recovered/Not Resolved]
  - Chronic respiratory failure [Unknown]
  - Hypotension [Unknown]

NARRATIVE: CASE EVENT DATE: 201811
